FAERS Safety Report 6693212-8 (Version None)
Quarter: 2010Q2

REPORT INFORMATION
  Report Type: 
  Country: None (occurrence: None)
  Receive Date: 20100421
  Receipt Date: 20100421
  Transmission Date: 20101027
  Serious: Yes (Life-Threatening, Disabling)
  Sender: FDA-Public Use
  Company Number: None

PATIENT
  Age: 12 Year
  Sex: Male
  Weight: 69 kg

DRUGS (7)
  1. RISPERDAL [Suspect]
     Dosage: 5 MG 3 TIMES DAILY
     Dates: start: 20050329, end: 20081220
  2. ZYPRALEX, PROMAZINE BAD CONCENTRATION, CONSCIOUSNESS LILLY [Suspect]
     Indication: VERBAL ABUSE
     Dosage: 1 MG 3 TIMES DAILY
     Dates: start: 20090915, end: 20091218
  3. . [Concomitant]
  4. . [Concomitant]
  5. . [Concomitant]
  6. . [Concomitant]
  7. . [Concomitant]

REACTIONS (5)
  - CONFUSIONAL STATE [None]
  - CRIME [None]
  - FEAR [None]
  - MALAISE [None]
  - SOMNOLENCE [None]
